FAERS Safety Report 7146625 (Version 4)
Quarter: 2014Q4

REPORT INFORMATION
  Report Type: Spontaneous
  Country: US (occurrence: US)
  Receive Date: 20091012
  Receipt Date: 20141223
  Transmission Date: 20150529
  Serious: Yes (Death, Hospitalization, Other)
  Sender: FDA-Public Use
  Company Number: US-BAYER-200935227NA

PATIENT
  Age: 26 Year
  Sex: Female
  Weight: 97.27 kg

DRUGS (8)
  1. ALBUTEROL. [Concomitant]
     Active Substance: ALBUTEROL
  2. TYLENOL WITH CODEINE [Concomitant]
     Active Substance: ACETAMINOPHEN\CODEINE PHOSPHATE
     Dosage: EVERY 4 H PRN
     Dates: start: 20050819
  3. DARVOCET [Concomitant]
     Active Substance: ACETAMINOPHEN\PROPOXYPHENE HYDROCHLORIDE
     Indication: PAIN IN EXTREMITY
     Dosage: UNK
     Dates: start: 20050816
  4. PAXIL [Concomitant]
     Active Substance: PAROXETINE HYDROCHLORIDE
  5. MOTRIN [Concomitant]
     Active Substance: IBUPROFEN
     Dosage: 600 MG, TID
     Dates: start: 20050815
  6. XANAX [Concomitant]
     Active Substance: ALPRAZOLAM
  7. BUSPAR [Concomitant]
     Active Substance: BUSPIRONE HYDROCHLORIDE
  8. YASMIN [Suspect]
     Active Substance: DROSPIRENONE\ETHINYL ESTRADIOL
     Dosage: 1 DF (DAILY DOSE), QD, ORAL
     Route: 048
     Dates: start: 200507, end: 200510

REACTIONS (12)
  - Dyspnoea exertional [Fatal]
  - Dyspnoea [Fatal]
  - Cyanosis [Fatal]
  - Oxygen saturation decreased [Fatal]
  - Deep vein thrombosis [Unknown]
  - Erythema [Unknown]
  - Pulmonary embolism [Fatal]
  - Stress [Fatal]
  - Tachycardia [Fatal]
  - Limb discomfort [Unknown]
  - Atrioventricular block complete [Unknown]
  - Tachypnoea [Fatal]

NARRATIVE: CASE EVENT DATE: 200508
